FAERS Safety Report 18877752 (Version 1)
Quarter: 2021Q1

REPORT INFORMATION
  Report Type: Spontaneous
  Country: US (occurrence: US)
  Receive Date: 20210211
  Receipt Date: 20210211
  Transmission Date: 20210420
  Serious: Yes (Hospitalization)
  Sender: FDA-Public Use
  Company Number: None

PATIENT
  Age: 43 Year
  Sex: Female

DRUGS (8)
  1. MORPHINE SULFATE. [Concomitant]
     Active Substance: MORPHINE SULFATE
     Dates: start: 20190911
  2. ONDANSETRON [Concomitant]
     Active Substance: ONDANSETRON
     Dates: start: 20190909
  3. OXBRYTA [Concomitant]
     Active Substance: VOXELOTOR
     Dates: start: 20210117
  4. HYDROXYUREA. [Concomitant]
     Active Substance: HYDROXYUREA
     Dates: start: 20191022
  5. FOLIC ACID. [Concomitant]
     Active Substance: FOLIC ACID
     Dates: start: 20200611
  6. VITAMIN D [Concomitant]
     Active Substance: VITAMIN D NOS
     Dates: start: 20200704
  7. DEFERASIROX. [Suspect]
     Active Substance: DEFERASIROX
     Indication: SICKLE CELL ANAEMIA
     Route: 048
     Dates: start: 20200723
  8. ENOXAPARIN [Concomitant]
     Active Substance: ENOXAPARIN
     Dates: start: 20201218

REACTIONS (2)
  - Sickle cell anaemia with crisis [None]
  - COVID-19 [None]

NARRATIVE: CASE EVENT DATE: 20201225
